FAERS Safety Report 10514597 (Version 2)
Quarter: 2014Q4

REPORT INFORMATION
  Report Type: Report from Study
  Country: AU (occurrence: AU)
  Receive Date: 20141013
  Receipt Date: 20141013
  Transmission Date: 20150528
  Serious: Yes (Hospitalization)
  Sender: FDA-Public Use
  Company Number: AU-CELGENE-008-21660-14062296

PATIENT
  Age: 67 Year
  Sex: Female

DRUGS (11)
  1. DYMADON P [Concomitant]
     Indication: PAIN
     Route: 065
  2. PRAMIN [Concomitant]
     Indication: NAUSEA
     Route: 065
  3. NEXIUM [Concomitant]
     Active Substance: ESOMEPRAZOLE MAGNESIUM
     Dosage: 40 MILLIGRAM
     Route: 065
  4. BETALOC [Concomitant]
     Active Substance: METOPROLOL TARTRATE
     Indication: HYPERTENSION
     Route: 065
  5. MAGNESIUM ASPARTATE [Concomitant]
     Active Substance: MAGNESIUM ASPARTATE
     Dosage: 100 MILLIGRAM
     Route: 065
  6. GEMCITABINE [Suspect]
     Active Substance: GEMCITABINE\GEMCITABINE HYDROCHLORIDE
     Indication: PANCREATIC CARCINOMA
     Dosage: 1690 MILLIGRAM
     Route: 065
     Dates: end: 20140429
  7. CREON 40000 [Concomitant]
     Dosage: 20 MILLIGRAM
     Route: 065
  8. COVERSYL [Concomitant]
     Active Substance: PERINDOPRIL
     Indication: HYPERTENSION
     Dosage: 80 MILLIGRAM
     Route: 065
  9. ATORVASTATIN PFIZER [Concomitant]
     Active Substance: ATORVASTATIN
     Dosage: 4000 MILLIGRAM
     Route: 065
  10. ABRAXANE [Suspect]
     Active Substance: PACLITAXEL
     Indication: PANCREATIC CARCINOMA
     Dosage: 211 MILLIGRAM
     Route: 041
     Dates: end: 20140429
  11. ASPIRIN. [Concomitant]
     Active Substance: ASPIRIN
     Dosage: 50 MILLIGRAM
     Route: 065

REACTIONS (1)
  - Cholangitis [Recovered/Resolved]

NARRATIVE: CASE EVENT DATE: 20140608
